APPROVED DRUG PRODUCT: FENOFIBRATE
Active Ingredient: FENOFIBRATE
Strength: 160MG
Dosage Form/Route: TABLET;ORAL
Application: A204019 | Product #002 | TE Code: AB
Applicant: LUPIN LTD
Approved: Aug 17, 2015 | RLD: No | RS: No | Type: RX